FAERS Safety Report 18365069 (Version 1)
Quarter: 2020Q4

REPORT INFORMATION
  Report Type: Spontaneous
  Country: US (occurrence: US)
  Receive Date: 20201009
  Receipt Date: 20201009
  Transmission Date: 20210114
  Serious: No
  Sender: FDA-Public Use
  Company Number: None

PATIENT
  Age: 31 Year
  Sex: Female

DRUGS (3)
  1. AMBRISENTAN 5MG TABLETS 30/BO: 5MG [Suspect]
     Active Substance: AMBRISENTAN
     Indication: PULMONARY ARTERIAL HYPERTENSION
     Route: 048
     Dates: start: 20200908, end: 20200914
  2. AMBRISENTAN 5MG TABLETS 30/BO: 5MG [Suspect]
     Active Substance: AMBRISENTAN
     Indication: CONNECTIVE TISSUE DISORDER
     Route: 048
     Dates: start: 20200908, end: 20200914
  3. AMBRISENTAN 5MG TABLETS 30/BO: 5MG [Suspect]
     Active Substance: AMBRISENTAN
     Indication: HEART DISEASE CONGENITAL
     Route: 048
     Dates: start: 20200908, end: 20200914

REACTIONS (10)
  - Orthopnoea [None]
  - Weight increased [None]
  - Fatigue [None]
  - Nausea [None]
  - Peripheral swelling [None]
  - Urine output decreased [None]
  - Chest pain [None]
  - Therapy cessation [None]
  - Abdominal distension [None]
  - Dyspnoea [None]

NARRATIVE: CASE EVENT DATE: 20200914
